FAERS Safety Report 17991800 (Version 1)
Quarter: 2020Q3

REPORT INFORMATION
  Report Type: Report from Study
  Country: GB (occurrence: GB)
  Receive Date: 20200707
  Receipt Date: 20200707
  Transmission Date: 20201103
  Serious: Yes (Other)
  Sender: FDA-Public Use
  Company Number: GB-PFIZER INC-2020254624

PATIENT
  Sex: Female

DRUGS (2)
  1. CARBOPLATIN. [Suspect]
     Active Substance: CARBOPLATIN
     Indication: BREAST CANCER METASTATIC
     Dosage: AUC 5 (DAY 1)
  2. M6620 [Suspect]
     Active Substance: BERZOSERTIB
     Indication: BREAST CANCER METASTATIC
     Dosage: 90 MG/M2, WEEKLY

REACTIONS (1)
  - Febrile neutropenia [Recovered/Resolved]
